FAERS Safety Report 9540093 (Version 1)
Quarter: 2013Q2

REPORT INFORMATION
  Report Type: Spontaneous
  Country: US (occurrence: None)
  Receive Date: 20130503
  Receipt Date: 20130503
  Transmission Date: 20140414
  Serious: No
  Sender: FDA-Public Use
  Company Number: 1000041740

PATIENT
  Age: 75 Year
  Sex: Female

DRUGS (4)
  1. DALIRESP (ROFLUMILAST) (500 MICROGRAM, TABLETS) [Suspect]
     Indication: CHRONIC OBSTRUCTIVE PULMONARY DISEASE
     Route: 048
     Dates: start: 20130114
  2. ADVAIR (SERETIDE0 (SERETIDE) [Concomitant]
  3. COMBIVENT (COMBIVENT) (COMBIVENT) [Concomitant]
  4. CLONAZEPAM (CLONAZEPAM) (CLONAZEPAM) [Concomitant]

REACTIONS (2)
  - Rash [None]
  - Burning sensation [None]
